FAERS Safety Report 24156855 (Version 1)
Quarter: 2024Q3

REPORT INFORMATION
  Report Type: Spontaneous
  Country: US (occurrence: None)
  Receive Date: 20240730
  Receipt Date: 20240730
  Transmission Date: 20241016
  Serious: No
  Sender: Public
  Company Number: None

PATIENT
  Age: 65 Year
  Sex: Female

DRUGS (1)
  1. XDEMVY [Suspect]
     Active Substance: LOTILANER
     Indication: Demodex blepharitis
     Dosage: 1 DROP(S) - GTT BID OPHATHALMIC?
     Route: 047
     Dates: start: 20240717, end: 20240724

REACTIONS (6)
  - Ocular hyperaemia [None]
  - Eye irritation [None]
  - Eye discharge [None]
  - Vision blurred [None]
  - Eye pain [None]
  - Therapy cessation [None]

NARRATIVE: CASE EVENT DATE: 20240723
